FAERS Safety Report 8830906 (Version 1)
Quarter: 2012Q4

REPORT INFORMATION
  Report Type: 
  Country: US (occurrence: US)
  Receive Date: 20121009
  Receipt Date: 20121009
  Transmission Date: 20130627
  Serious: No
  Sender: FDA-Public Use
  Company Number: US-PFIZER INC-2012247742

PATIENT
  Age: 44 Year
  Sex: Female
  Weight: 90.7 kg

DRUGS (3)
  1. ADVIL [Suspect]
     Indication: DYSMENORRHOEA
     Dosage: UNK
  2. PROVENTIL HFA [Suspect]
     Indication: ASTHMA
     Dosage: UNK
  3. VENTOLIN HFA [Suspect]
     Indication: ASTHMA
     Dosage: UNK

REACTIONS (1)
  - Asthma [Recovered/Resolved]
